FAERS Safety Report 25683192 (Version 1)
Quarter: 2025Q3

REPORT INFORMATION
  Report Type: Report from Study
  Country: US (occurrence: US)
  Receive Date: 20250814
  Receipt Date: 20250814
  Transmission Date: 20251020
  Serious: Yes (Other)
  Sender: ABBVIE
  Company Number: US-ABBVIE-6404909

PATIENT
  Age: 20 Year
  Sex: Female

DRUGS (3)
  1. RINVOQ [Suspect]
     Active Substance: UPADACITINIB
     Indication: Crohn^s disease
     Route: 048
     Dates: end: 20250608
  2. RINVOQ [Suspect]
     Active Substance: UPADACITINIB
     Indication: Axial spondyloarthritis
  3. RINVOQ [Suspect]
     Active Substance: UPADACITINIB
     Indication: Crohn^s disease
     Route: 048
     Dates: start: 20241002

REACTIONS (11)
  - Gastrointestinal disorder [Unknown]
  - Wrong technique in product usage process [Unknown]
  - Short-bowel syndrome [Unknown]
  - Therapeutic product effect incomplete [Not Recovered/Not Resolved]
  - Crohn^s disease [Not Recovered/Not Resolved]
  - Axial spondyloarthritis [Unknown]
  - Pain [Not Recovered/Not Resolved]
  - Malabsorption [Unknown]
  - Off label use [Unknown]
  - Arthralgia [Unknown]
  - Ankylosing spondylitis [Unknown]

NARRATIVE: CASE EVENT DATE: 20250101
